FAERS Safety Report 7513370-2 (Version None)
Quarter: 2011Q2

REPORT INFORMATION
  Report Type: 
  Country: None (occurrence: None)
  Receive Date: 20110531
  Receipt Date: 20110531
  Transmission Date: 20111010
  Serious: No
  Sender: FDA-Public Use
  Company Number: US-TEVA-246010USA

PATIENT
  Sex: Female
  Weight: 86.26 kg

DRUGS (2)
  1. PLAN B ONE-STEP [Suspect]
     Indication: POST COITAL CONTRACEPTION
     Dosage: 1.5 MILLIGRAM;
     Route: 048
     Dates: start: 20100806, end: 20100806
  2. METRONIDAZOLE [Concomitant]
     Indication: VAGINITIS BACTERIAL
     Dosage: 1000 MILLIGRAM;
     Route: 048
     Dates: start: 20100801, end: 20100801

REACTIONS (3)
  - MENSTRUATION DELAYED [None]
  - PREGNANCY AFTER POST COITAL CONTRACEPTION [None]
  - DRUG INEFFECTIVE [None]
